FAERS Safety Report 20512690 (Version 1)
Quarter: 2022Q1

REPORT INFORMATION
  Report Type: Spontaneous
  Country: CN (occurrence: CN)
  Receive Date: 20220224
  Receipt Date: 20220224
  Transmission Date: 20220423
  Serious: Yes (Other)
  Sender: FDA-Public Use
  Company Number: CN-PFIZER INC-202200268902

PATIENT
  Age: 63 Year
  Sex: Male
  Weight: 60 kg

DRUGS (2)
  1. METHYLPREDNISOLONE SODIUM SUCCINATE [Suspect]
     Active Substance: METHYLPREDNISOLONE SODIUM SUCCINATE
     Indication: Therapeutic procedure
     Dosage: 60 MG, 1X/DAY
     Route: 041
     Dates: start: 20220211, end: 20220211
  2. SODIUM CHLORIDE [Concomitant]
     Active Substance: SODIUM CHLORIDE
     Indication: Vehicle solution use
     Dosage: 50 ML, 1X/DAY
     Route: 041
     Dates: start: 20220211, end: 20220211

REACTIONS (2)
  - Abdominal discomfort [Recovering/Resolving]
  - Abdominal pain upper [Recovering/Resolving]

NARRATIVE: CASE EVENT DATE: 20220211
